FAERS Safety Report 6004304-0 (Version None)
Quarter: 2008Q4

REPORT INFORMATION
  Report Type: 
  Country: None (occurrence: None)
  Receive Date: 20081216
  Receipt Date: 20081205
  Transmission Date: 20090506
  Serious: Yes (Death)
  Sender: FDA-Public Use
  Company Number: US-BIOGENIDEC-2008BI029675

PATIENT
  Age: 58 Year
  Sex: Female

DRUGS (3)
  1. TYSABRI [Suspect]
     Indication: MULTIPLE SCLEROSIS
     Route: 042
     Dates: start: 20080609, end: 20081006
  2. TYSABRI [Suspect]
     Route: 042
     Dates: start: 20050113, end: 20050101
  3. TYSABRI [Suspect]
     Route: 042
     Dates: start: 20070828, end: 20080219

REACTIONS (1)
  - DROWNING [None]
